FAERS Safety Report 18122470 (Version 1)
Quarter: 2020Q3

REPORT INFORMATION
  Report Type: Spontaneous
  Country: NO (occurrence: NO)
  Receive Date: 20200807
  Receipt Date: 20200807
  Transmission Date: 20201103
  Serious: Yes (Disabling)
  Sender: FDA-Public Use
  Company Number: NO-SAMSUNG BIOEPIS-SB-2020-24360

PATIENT
  Age: 52 Year
  Sex: Male

DRUGS (5)
  1. PARACET [Concomitant]
     Active Substance: ACETAMINOPHEN
     Indication: PAIN
     Dosage: 1 TABLET UP TO 3 TIMES A DAY
     Route: 065
  2. IBUX [Concomitant]
     Active Substance: IBUPROFEN
     Indication: PRODUCT USED FOR UNKNOWN INDICATION
     Dosage: UNKNOWN
     Route: 065
  3. BENEPALI [Suspect]
     Active Substance: ETANERCEPT
     Indication: APHTHOUS ULCER
     Dosage: STARTED WITH 25 MG 2 TIMES A WEEK. FROM SPRING 2018: 50 MG 1 TIME A WEEK.
     Route: 065
     Dates: start: 201709
  4. BENEPALI [Suspect]
     Active Substance: ETANERCEPT
     Dosage: STARTED WITH 25 MG 2 TIMES A WEEK. FROM SPRING 2018: 50 MG 1 TIME A WEEK.
     Route: 065
     Dates: start: 2018, end: 201811
  5. BETNOVAT [Concomitant]
     Active Substance: BETAMETHASONE
     Indication: PSORIASIS
     Dosage: UNKNOWN, ON SCALP, AS REQUIRED
     Route: 065

REACTIONS (5)
  - Neurological symptom [Not Recovered/Not Resolved]
  - Abdominal discomfort [Unknown]
  - Demyelination [Not Recovered/Not Resolved]
  - Product use in unapproved indication [Unknown]
  - Pain [Not Recovered/Not Resolved]

NARRATIVE: CASE EVENT DATE: 201806
